FAERS Safety Report 16382176 (Version 1)
Quarter: 2019Q2

REPORT INFORMATION
  Report Type: Spontaneous
  Country: US (occurrence: US)
  Receive Date: 20190603
  Receipt Date: 20190603
  Transmission Date: 20190711
  Serious: No
  Sender: FDA-Public Use
  Company Number: US-BAUSCH-BL-2019-015017

PATIENT
  Sex: Female
  Weight: 77.18 kg

DRUGS (1)
  1. BRYHALI [Suspect]
     Active Substance: HALOBETASOL PROPIONATE
     Indication: PSORIASIS
     Dosage: 5 TO 6 TIMES A WEEK FOR 6 TO 8 WEEKS
     Route: 061
     Dates: start: 201903, end: 2019

REACTIONS (2)
  - Application site discolouration [Not Recovered/Not Resolved]
  - Inappropriate schedule of product administration [Unknown]

NARRATIVE: CASE EVENT DATE: 2019
